FAERS Safety Report 10690177 (Version 2)
Quarter: 2015Q1

REPORT INFORMATION
  Report Type: Spontaneous
  Country: US (occurrence: US)
  Receive Date: 20150105
  Receipt Date: 20150113
  Transmission Date: 20150720
  Serious: No
  Sender: FDA-Public Use
  Company Number: US-009507513-1412USA009816

PATIENT
  Age: 52 Year
  Sex: Female
  Weight: 54.42 kg

DRUGS (2)
  1. MIRALAX [Suspect]
     Active Substance: POLYETHYLENE GLYCOL 3350
     Indication: BOWEL MOVEMENT IRREGULARITY
     Dosage: 34 G, QD
     Route: 048
     Dates: start: 2011
  2. FIBRINOL [Concomitant]
     Indication: MIGRAINE
     Dosage: UNK, UNKNOWN

REACTIONS (4)
  - Incorrect drug administration duration [Unknown]
  - Product quality issue [Unknown]
  - Drug effect decreased [Unknown]
  - Overdose [Unknown]

NARRATIVE: CASE EVENT DATE: 201410
